FAERS Safety Report 9032516 (Version 2)
Quarter: 2013Q1

REPORT INFORMATION
  Report Type: Spontaneous
  Country: JP (occurrence: None)
  Receive Date: 20130108
  Receipt Date: 20130129
  Transmission Date: 20140127
  Serious: Yes (Hospitalization, Other)
  Sender: FDA-Public Use
  Company Number: 2012P1068379

PATIENT
  Age: 37 Year
  Sex: Female

DRUGS (3)
  1. CHLORPROMAZINE [Suspect]
     Route: 048
  2. PHENOBARBITAL [Suspect]
     Route: 048
  3. PROMETHAZINE [Suspect]
     Route: 048

REACTIONS (4)
  - Toxicity to various agents [None]
  - Altered state of consciousness [None]
  - Respiratory depression [None]
  - Bezoar [None]
